FAERS Safety Report 21141732 (Version 7)
Quarter: 2022Q3

REPORT INFORMATION
  Report Type: Spontaneous
  Country: US (occurrence: US)
  Receive Date: 20220728
  Receipt Date: 20220928
  Transmission Date: 20221027
  Serious: No
  Sender: FDA-Public Use
  Company Number: US-PFIZER INC-202200965695

PATIENT
  Age: 14 Year
  Sex: Male
  Weight: 86.18 kg

DRUGS (1)
  1. GENOTROPIN [Suspect]
     Active Substance: SOMATROPIN
     Indication: Growth hormone deficiency
     Dosage: 2.6 MG, DAILY
     Route: 058
     Dates: start: 20220702

REACTIONS (4)
  - Incorrect dose administered by device [Unknown]
  - Drug dose omission by device [Not Recovered/Not Resolved]
  - Device leakage [Not Recovered/Not Resolved]
  - Device delivery system issue [Not Recovered/Not Resolved]

NARRATIVE: CASE EVENT DATE: 20220711
